FAERS Safety Report 12098593 (Version 1)
Quarter: 2016Q1

REPORT INFORMATION
  Report Type: Spontaneous
  Country: SE (occurrence: SE)
  Receive Date: 20160222
  Receipt Date: 20160222
  Transmission Date: 20160526
  Serious: Yes (Hospitalization)
  Sender: FDA-Public Use
  Company Number: SE-ROCHE-1714019

PATIENT
  Age: 86 Year
  Sex: Female

DRUGS (14)
  1. ELIQUIS [Concomitant]
     Active Substance: APIXABAN
  2. DIGOXIN. [Concomitant]
     Active Substance: DIGOXIN
  3. ALENDRONIC ACID [Concomitant]
     Active Substance: ALENDRONIC ACID
  4. FURIX [Concomitant]
     Active Substance: FUROSEMIDE
  5. CALCICHEW [Concomitant]
     Active Substance: CALCIUM CARBONATE
  6. VENLAFAXINE [Concomitant]
     Active Substance: VENLAFAXINE HYDROCHLORIDE
  7. PANODIL [Concomitant]
     Active Substance: ACETAMINOPHEN
  8. ENALAPRIL [Concomitant]
     Active Substance: ENALAPRIL
  9. CLOMIPRAMINE [Concomitant]
     Active Substance: CLOMIPRAMINE
  10. METOPROLOL. [Concomitant]
     Active Substance: METOPROLOL
  11. OMEPRAZOLE. [Concomitant]
     Active Substance: OMEPRAZOLE
  12. PREDNISOLONE. [Concomitant]
     Active Substance: PREDNISOLONE
  13. NOVOMIX [Concomitant]
     Active Substance: INSULIN ASPART
  14. LUCENTIS [Suspect]
     Active Substance: RANIBIZUMAB
     Indication: NEOVASCULAR AGE-RELATED MACULAR DEGENERATION
     Dosage: 10 MG/ML, 0.165 ML, SINGLE DOSE
     Route: 050
     Dates: start: 20160104, end: 20160104

REACTIONS (1)
  - Myocardial infarction [Recovered/Resolved]

NARRATIVE: CASE EVENT DATE: 20160202
